FAERS Safety Report 9139577 (Version 1)
Quarter: 2013Q1

REPORT INFORMATION
  Report Type: Spontaneous
  Country: US (occurrence: None)
  Receive Date: 20130205
  Receipt Date: 20130205
  Transmission Date: 20140127
  Serious: Yes (Death)
  Sender: FDA-Public Use
  Company Number: VAL_01329_2013

PATIENT
  Age: 47 Year
  Sex: Female

DRUGS (8)
  1. METOPROLOL [Suspect]
     Indication: PRODUCT USED FOR UNKNOWN INDICATION
  2. QUETIAPINE [Suspect]
     Indication: PRODUCT USED FOR UNKNOWN INDICATION
  3. CIPROFLOXACIN [Suspect]
     Indication: PRODUCT USED FOR UNKNOWN INDICATION
  4. NEBIVOLOL [Suspect]
     Indication: PRODUCT USED FOR UNKNOWN INDICATION
  5. PREGABALIN [Suspect]
     Indication: PRODUCT USED FOR UNKNOWN INDICATION
  6. DULOXETINE [Suspect]
     Indication: PRODUCT USED FOR UNKNOWN INDICATION
  7. THIAZIDE [Suspect]
     Indication: PRODUCT USED FOR UNKNOWN INDICATION
  8. ANTIDEPRESSANTS [Suspect]

REACTIONS (2)
  - Poisoning [None]
  - Completed suicide [None]
